FAERS Safety Report 5157466-1 (Version None)
Quarter: 2006Q4

REPORT INFORMATION
  Report Type: 
  Country: None (occurrence: None)
  Receive Date: 20061127
  Receipt Date: 20061117
  Transmission Date: 20070319
  Serious: Yes (Hospitalization)
  Sender: FDA-Public Use
  Company Number: FR-AVENTIS-200614052FR

PATIENT
  Age: 52 Year
  Sex: Male

DRUGS (2)
  1. KETEK [Suspect]
     Indication: TRACHEOBRONCHITIS
     Route: 048
     Dates: start: 20061111, end: 20061111
  2. RHINADVIL [Concomitant]
     Indication: TRACHEOBRONCHITIS
     Route: 048
     Dates: start: 20061111

REACTIONS (8)
  - FLATULENCE [None]
  - FORMICATION [None]
  - HYPOAESTHESIA [None]
  - MALAISE [None]
  - PYREXIA [None]
  - SEPSIS [None]
  - SKIN DISCOLOURATION [None]
  - TREMOR [None]
